FAERS Safety Report 23747028 (Version 1)
Quarter: 2024Q2

REPORT INFORMATION
  Report Type: Spontaneous
  Country: US (occurrence: US)
  Receive Date: 20240416
  Receipt Date: 20240416
  Transmission Date: 20240716
  Serious: Yes (Hospitalization)
  Sender: FDA-Public Use
  Company Number: US-STRIDES ARCOLAB LIMITED-2024SP004346

PATIENT
  Age: 29 Year
  Sex: Male

DRUGS (14)
  1. ETOPOSIDE [Suspect]
     Active Substance: ETOPOSIDE
     Indication: Primary mediastinal large B-cell lymphoma
     Dosage: UNK, CYCLICAL (FIRST CYCLE) (DA R-EPOCH REGIMEN)
     Route: 065
  2. ETOPOSIDE [Suspect]
     Active Substance: ETOPOSIDE
     Dosage: UNK, CYCLICAL (20% INCREASE IN 2ND CYCLE; AS PART OF DA R-EPOCH REGIMEN)
     Route: 065
  3. ETOPOSIDE [Suspect]
     Active Substance: ETOPOSIDE
     Dosage: UNK, CYCLICAL, AFTER DISCHARGE (COMPLETE MORE 4?CYCLES)
     Route: 065
  4. PREDNISOLONE [Suspect]
     Active Substance: PREDNISOLONE
     Indication: Primary mediastinal large B-cell lymphoma
     Dosage: UNK, CYCLICAL (FOUR CYCLE) (DA R-EPOCH REGIMEN)
     Route: 065
  5. DOXORUBICIN [Suspect]
     Active Substance: DOXORUBICIN
     Indication: Primary mediastinal large B-cell lymphoma
     Dosage: UNK, CYCLICAL (FIRST CYCLE) (DA R-EPOCH REGIMEN)
     Route: 065
  6. DOXORUBICIN [Suspect]
     Active Substance: DOXORUBICIN
     Dosage: UNK, CYCLICAL (20% INCREASE IN 2ND CYCLE; AS PART OF DA R-EPOCH REGIMEN)
     Route: 065
  7. DOXORUBICIN [Suspect]
     Active Substance: DOXORUBICIN
     Dosage: UNK, CYCLICAL, AFTER DISCHARGE (COMPLETE MORE 4?CYCLES)
     Route: 065
  8. VINCRISTINE SULFATE [Suspect]
     Active Substance: VINCRISTINE SULFATE
     Indication: Primary mediastinal large B-cell lymphoma
     Dosage: UNK, CYCLICAL (FOUR CYCLE) (DA R-EPOCH REGIMEN)
     Route: 065
  9. RITUXIMAB [Suspect]
     Active Substance: RITUXIMAB
     Indication: Primary mediastinal large B-cell lymphoma
     Dosage: UNK, CYCLICAL (FOUR CYCLE) (DA R-EPOCH REGIMEN)
     Route: 065
  10. CYCLOPHOSPHAMIDE [Suspect]
     Active Substance: CYCLOPHOSPHAMIDE
     Indication: Primary mediastinal large B-cell lymphoma
     Dosage: UNK, CYCLICAL (FIRST CYCLE) (DA R-EPOCH REGIMEN)
     Route: 065
  11. CYCLOPHOSPHAMIDE [Suspect]
     Active Substance: CYCLOPHOSPHAMIDE
     Dosage: UNK, CYCLICAL (20% INCREASE IN 2ND CYCLE; AS PART OF DA R-EPOCH REGIMEN)
     Route: 065
  12. CYCLOPHOSPHAMIDE [Suspect]
     Active Substance: CYCLOPHOSPHAMIDE
     Dosage: UNK, CYCLICAL, AFTER DISCHARGE (COMPLETE MORE 4?CYCLES)
     Route: 065
  13. PEGFILGRASTIM [Suspect]
     Active Substance: PEGFILGRASTIM
     Indication: Prophylaxis
     Dosage: UNK, CYCLICAL (FIRST CYCLE)
     Route: 065
  14. PEGFILGRASTIM [Suspect]
     Active Substance: PEGFILGRASTIM
     Dosage: UNK, CYCLICAL (SECOND CYCLE)
     Route: 065

REACTIONS (3)
  - Fat embolism syndrome [Recovered/Resolved]
  - Bone marrow necrosis [Recovered/Resolved]
  - Off label use [Unknown]
